FAERS Safety Report 4316868-3 (Version None)
Quarter: 2004Q1

REPORT INFORMATION
  Report Type: 
  Country: None (occurrence: None)
  Receive Date: 20040311
  Receipt Date: 20040227
  Transmission Date: 20041129
  Serious: No
  Sender: FDA-Public Use
  Company Number: 04H-122-0252016-00

PATIENT

DRUGS (3)
  1. LEUCOVORIN CALCIUM [Suspect]
     Indication: CHEMOTHERAPY
     Dosage: 60 MG/M2, BOLUS INJECTION
  2. OXALIPLATIN [Suspect]
     Indication: CHEMOTHERAPY
     Dosage: 85 MG/M2, 2 HR INFUSION, INTRAVENOUS
     Route: 042
  3. FLUOROURACIL [Suspect]
     Indication: CHEMOTHERAPY
     Dosage: 500 MG/M2, BOLUS, INJECTION

REACTIONS (2)
  - DRUG TOXICITY [None]
  - NEUTROPENIA [None]
